FAERS Safety Report 10243938 (Version 1)
Quarter: 2014Q2

REPORT INFORMATION
  Report Type: Report from Study
  Country: US (occurrence: US)
  Receive Date: 20140618
  Receipt Date: 20140618
  Transmission Date: 20141212
  Serious: Yes (Other)
  Sender: FDA-Public Use
  Company Number: US-ABBVIE-14P-163-1248026-00

PATIENT
  Sex: Male
  Weight: 78.54 kg

DRUGS (2)
  1. HUMIRA [Suspect]
     Indication: CROHN^S DISEASE
     Route: 058
     Dates: start: 2010, end: 2011
  2. HUMIRA [Suspect]

REACTIONS (5)
  - Intestinal fistula [Recovered/Resolved]
  - Anastomotic leak [Recovered/Resolved]
  - Crohn^s disease [Not Recovered/Not Resolved]
  - Sepsis [Recovered/Resolved]
  - Drug effect decreased [Not Recovered/Not Resolved]
